FAERS Safety Report 6976980-7 (Version None)
Quarter: 2010Q3

REPORT INFORMATION
  Report Type: 
  Country: None (occurrence: None)
  Receive Date: 20100910
  Receipt Date: 20100831
  Transmission Date: 20110219
  Serious: Yes (Hospitalization, Other)
  Sender: FDA-Public Use
  Company Number: CH-WYE-G06602510

PATIENT
  Age: 38 Year
  Sex: Female

DRUGS (3)
  1. EFFEXOR [Suspect]
     Indication: DEPRESSION
     Dates: start: 20090101
  2. XANAX [Suspect]
     Indication: DEPRESSION
     Dosage: .5 MG EVERY 1 PRN
     Dates: start: 20090101
  3. ZOLPIDEM TARTRATE [Suspect]
     Indication: DEPRESSION
     Dates: start: 20090101

REACTIONS (2)
  - DRUG EFFECT DECREASED [None]
  - DRUG EXPOSURE DURING PREGNANCY [None]
